FAERS Safety Report 8158105-8 (Version None)
Quarter: 2012Q1

REPORT INFORMATION
  Report Type: 
  Country: None (occurrence: None)
  Receive Date: 20120222
  Receipt Date: 20120220
  Transmission Date: 20120608
  Serious: Yes (Death, Hospitalization, Other)
  Sender: FDA-Public Use
  Company Number: PHHY2011AU42009

PATIENT
  Sex: Male

DRUGS (3)
  1. CLOZARIL [Suspect]
     Indication: SCHIZOPHRENIA
     Dosage: 200 MG
     Dates: start: 20110409, end: 20110503
  2. ARIPIPRAZOLE [Concomitant]
     Dosage: 20 MG, UNK
     Route: 048
  3. VALPROATE BISMUTH [Concomitant]

REACTIONS (6)
  - TROPONIN INCREASED [None]
  - EJECTION FRACTION DECREASED [None]
  - MYOCARDITIS [None]
  - TACHYCARDIA [None]
  - ECHOCARDIOGRAM ABNORMAL [None]
  - CARDIAC FAILURE [None]
